FAERS Safety Report 19249365 (Version 1)
Quarter: 2021Q2

REPORT INFORMATION
  Report Type: Spontaneous
  Country: US (occurrence: US)
  Receive Date: 20210512
  Receipt Date: 20210512
  Transmission Date: 20210717
  Serious: No
  Sender: FDA-Public Use
  Company Number: US-KYOWAKIRIN-2021BKK007448

PATIENT

DRUGS (1)
  1. NOURIANZ [Suspect]
     Active Substance: ISTRADEFYLLINE
     Indication: PARKINSON^S DISEASE
     Dosage: 40 MG, 1 TIME DAILY
     Route: 048
     Dates: start: 20200917

REACTIONS (5)
  - Asthenia [Unknown]
  - Muscle rigidity [Unknown]
  - Condition aggravated [Unknown]
  - Tremor [Unknown]
  - Back pain [Unknown]
